FAERS Safety Report 8929429 (Version 1)
Quarter: 2012Q4

REPORT INFORMATION
  Report Type: Spontaneous
  Country: US (occurrence: None)
  Receive Date: 20121119
  Receipt Date: 20121119
  Transmission Date: 20130627
  Serious: Yes (Other)
  Sender: FDA-Public Use
  Company Number: TPA2012A08948

PATIENT
  Age: 46 Year
  Sex: Female

DRUGS (1)
  1. DEXILANT [Suspect]
     Route: 048
     Dates: start: 201206, end: 2012

REACTIONS (4)
  - Pain [None]
  - Joint swelling [None]
  - Stress fracture [None]
  - Tibia fracture [None]
